FAERS Safety Report 23703909 (Version 1)
Quarter: 2024Q2

REPORT INFORMATION
  Report Type: Spontaneous
  Country: US (occurrence: US)
  Receive Date: 20240403
  Receipt Date: 20240403
  Transmission Date: 20240716
  Serious: No
  Sender: FDA-Public Use
  Company Number: US-International Medication Systems, Limited-2155205

PATIENT
  Age: 1 Day
  Sex: Male
  Weight: 2.7 kg

DRUGS (1)
  1. PHYTONADIONE [Suspect]
     Active Substance: PHYTONADIONE
     Indication: Prophylaxis
     Route: 030
     Dates: start: 20230718, end: 20230718

REACTIONS (1)
  - Haemorrhage [Recovered/Resolved]

NARRATIVE: CASE EVENT DATE: 20230720
